FAERS Safety Report 15615084 (Version 1)
Quarter: 2018Q4

REPORT INFORMATION
  Report Type: Report from Study
  Country: None (occurrence: US)
  Receive Date: 20181114
  Receipt Date: 20181114
  Transmission Date: 20190205
  Serious: Yes (Hospitalization, Other)
  Sender: FDA-Public Use
  Company Number: US-ABBVIE-18K-163-2543614-00

PATIENT
  Age: 66 Year
  Sex: Female
  Weight: 69.92 kg

DRUGS (6)
  1. HUMIRA [Suspect]
     Active Substance: ADALIMUMAB
     Indication: CROHN^S DISEASE
     Route: 058
     Dates: start: 2016, end: 201611
  2. HUMIRA [Suspect]
     Active Substance: ADALIMUMAB
     Route: 058
     Dates: start: 201702
  3. METOPROLOL. [Concomitant]
     Active Substance: METOPROLOL
     Indication: BLOOD PRESSURE MEASUREMENT
  4. OMEPRAZOLE. [Concomitant]
     Active Substance: OMEPRAZOLE
     Indication: GASTROOESOPHAGEAL REFLUX DISEASE
  5. POTASSIUM [Concomitant]
     Active Substance: POTASSIUM
     Indication: BLOOD POTASSIUM DECREASED
  6. MERCAPTOPURINE. [Concomitant]
     Active Substance: MERCAPTOPURINE
     Indication: CROHN^S DISEASE

REACTIONS (5)
  - Nausea [Recovered/Resolved]
  - Abdominal adhesions [Recovered/Resolved]
  - Neuropathy peripheral [Not Recovered/Not Resolved]
  - Large intestinal obstruction [Recovered/Resolved]
  - Abdominal pain upper [Recovered/Resolved]

NARRATIVE: CASE EVENT DATE: 2017
